FAERS Safety Report 25548250 (Version 1)
Quarter: 2025Q3

REPORT INFORMATION
  Report Type: Spontaneous
  Country: US (occurrence: US)
  Receive Date: 20250714
  Receipt Date: 20250714
  Transmission Date: 20251020
  Serious: Yes (Other)
  Sender: MYLAN
  Company Number: US-MYLANLABS-2025M1056446

PATIENT
  Age: 67 Year
  Sex: Male

DRUGS (20)
  1. DIMETHYL FUMARATE [Suspect]
     Active Substance: DIMETHYL FUMARATE
     Indication: Secondary progressive multiple sclerosis
  2. DIMETHYL FUMARATE [Suspect]
     Active Substance: DIMETHYL FUMARATE
     Route: 065
  3. DIMETHYL FUMARATE [Suspect]
     Active Substance: DIMETHYL FUMARATE
     Route: 065
  4. DIMETHYL FUMARATE [Suspect]
     Active Substance: DIMETHYL FUMARATE
  5. CLADRIBINE [Suspect]
     Active Substance: CLADRIBINE
     Indication: Secondary progressive multiple sclerosis
  6. CLADRIBINE [Suspect]
     Active Substance: CLADRIBINE
  7. CLADRIBINE [Suspect]
     Active Substance: CLADRIBINE
     Route: 042
  8. CLADRIBINE [Suspect]
     Active Substance: CLADRIBINE
     Route: 042
  9. CLADRIBINE [Suspect]
     Active Substance: CLADRIBINE
  10. CLADRIBINE [Suspect]
     Active Substance: CLADRIBINE
  11. CLADRIBINE [Suspect]
     Active Substance: CLADRIBINE
     Route: 042
  12. CLADRIBINE [Suspect]
     Active Substance: CLADRIBINE
     Route: 042
  13. CLADRIBINE [Suspect]
     Active Substance: CLADRIBINE
  14. CLADRIBINE [Suspect]
     Active Substance: CLADRIBINE
     Route: 042
  15. CLADRIBINE [Suspect]
     Active Substance: CLADRIBINE
  16. CLADRIBINE [Suspect]
     Active Substance: CLADRIBINE
     Route: 042
  17. NATALIZUMAB [Concomitant]
     Active Substance: NATALIZUMAB
     Indication: Secondary progressive multiple sclerosis
  18. NATALIZUMAB [Concomitant]
     Active Substance: NATALIZUMAB
     Route: 065
  19. NATALIZUMAB [Concomitant]
     Active Substance: NATALIZUMAB
     Route: 065
  20. NATALIZUMAB [Concomitant]
     Active Substance: NATALIZUMAB

REACTIONS (1)
  - Myelodysplastic syndrome [Unknown]
